FAERS Safety Report 19644997 (Version 3)
Quarter: 2021Q3

REPORT INFORMATION
  Report Type: Spontaneous
  Country: AR (occurrence: AR)
  Receive Date: 20210802
  Receipt Date: 20210902
  Transmission Date: 20211014
  Serious: Yes (Other)
  Sender: FDA-Public Use
  Company Number: AR-AMGEN-ARGSP2021116727

PATIENT
  Age: 61 Year
  Sex: Female

DRUGS (6)
  1. TAFIROL 1 G [Concomitant]
     Dosage: UNK
  2. NAPRUX [NAPROXEN] [Concomitant]
     Dosage: UNK
  3. ENBREL [Suspect]
     Active Substance: ETANERCEPT
     Dosage: 50 MG, EVERY 15 DAYS
     Route: 065
  4. TRAMADOL HYDROCHLORIDE. [Concomitant]
     Active Substance: TRAMADOL HYDROCHLORIDE
     Dosage: UNK
  5. LINPREL [Concomitant]
     Dosage: UNK
  6. ENBREL [Suspect]
     Active Substance: ETANERCEPT
     Indication: PRODUCT USED FOR UNKNOWN INDICATION
     Dosage: 50 MG, WEEKLY
     Route: 065

REACTIONS (11)
  - Diabetes mellitus [Unknown]
  - Insomnia [Unknown]
  - Drug effect less than expected [Unknown]
  - Headache [Unknown]
  - Pain [Unknown]
  - Peripheral swelling [Unknown]
  - Off label use [Unknown]
  - Epistaxis [Unknown]
  - Platelet count decreased [Unknown]
  - Condition aggravated [Unknown]
  - Joint swelling [Unknown]

NARRATIVE: CASE EVENT DATE: 202106
